FAERS Safety Report 11603105 (Version 1)
Quarter: 2015Q4

REPORT INFORMATION
  Report Type: Spontaneous
  Country: US (occurrence: US)
  Receive Date: 20151006
  Receipt Date: 20151006
  Transmission Date: 20160304
  Serious: No
  Sender: FDA-Public Use
  Company Number: US-AMGEN-USASP2014085810

PATIENT
  Age: 65 Year
  Sex: Female

DRUGS (7)
  1. ALVESCO [Concomitant]
     Active Substance: CICLESONIDE
     Dosage: UNK
     Dates: start: 20150428
  2. VESICARE [Concomitant]
     Active Substance: SOLIFENACIN SUCCINATE
     Indication: URINARY INCONTINENCE
     Dosage: 5 MG, UNK
     Dates: start: 20140624
  3. ADVIL (MEFENAMIC ACID) [Concomitant]
     Active Substance: MEFENAMIC ACID
     Indication: PAIN
     Dosage: 200 MG, UNK
     Dates: start: 20131011
  4. FLOVENT HFA [Concomitant]
     Active Substance: FLUTICASONE PROPIONATE
     Dosage: 110 MUG, BID
     Dates: start: 20150203
  5. FLUTICASONE [Concomitant]
     Active Substance: FLUTICASONE\FLUTICASONE PROPIONATE
     Dosage: 50 MUG, QD
     Dates: start: 20150428
  6. PROLIA [Suspect]
     Active Substance: DENOSUMAB
     Indication: OSTEOPOROSIS POSTMENOPAUSAL
     Dosage: UNK UNK, Q6MO
     Route: 058
     Dates: start: 2013
  7. COMBIVENT [Concomitant]
     Active Substance: ALBUTEROL SULFATE\IPRATROPIUM BROMIDE
     Dosage: 0.5-2.5 (3) MG/3ML
     Dates: start: 20150423

REACTIONS (16)
  - Mobility decreased [Unknown]
  - Insomnia [Unknown]
  - Pain in extremity [Unknown]
  - Walking aid user [Unknown]
  - Pruritus [Unknown]
  - Rash [Unknown]
  - Diarrhoea [Unknown]
  - Gait disturbance [Unknown]
  - Bone pain [Unknown]
  - Bone density abnormal [Unknown]
  - Pain [Unknown]
  - Adverse drug reaction [Unknown]
  - Bone disorder [Unknown]
  - Arthralgia [Unknown]
  - Back pain [Unknown]
  - Myalgia [Unknown]

NARRATIVE: CASE EVENT DATE: 2014
